FAERS Safety Report 7360220-3 (Version None)
Quarter: 2011Q1

REPORT INFORMATION
  Report Type: 
  Country: None (occurrence: None)
  Receive Date: 20110307
  Receipt Date: 20110221
  Transmission Date: 20110831
  Serious: Yes (Other)
  Sender: FDA-Public Use
  Company Number: 2011AP000319

PATIENT
  Sex: Female

DRUGS (5)
  1. OMEPRAZOLE [Suspect]
     Indication: PROPHYLAXIS AGAINST GASTROINTESTINAL ULCER
     Dosage: 20 MG;QD; PO
     Route: 048
     Dates: start: 20081016
  2. FOLIC ACID [Suspect]
     Indication: PREGNANCY
     Dosage: 1 DF;QD
     Dates: start: 20090501
  3. LYRICA [Suspect]
     Indication: PAIN
     Dosage: 2 DF;BID
     Dates: start: 20080815
  4. CO-CODAMOL (PANADEINE CO) [Suspect]
     Indication: PAIN
     Dosage: 2 DF;
     Dates: start: 20090106
  5. HYDROXOCOBALAMIN [Suspect]
     Indication: VITAMIN B12 DEFICIENCY
     Dosage: 3 DF;QM
     Dates: start: 20091216

REACTIONS (5)
  - PELVIC PAIN [None]
  - ANTEPARTUM HAEMORRHAGE [None]
  - INFECTION [None]
  - FORCEPS DELIVERY [None]
  - DRUG EXPOSURE DURING PREGNANCY [None]
